FAERS Safety Report 14547866 (Version 1)
Quarter: 2018Q1

REPORT INFORMATION
  Report Type: Spontaneous
  Country: RU (occurrence: RU)
  Receive Date: 20180219
  Receipt Date: 20180219
  Transmission Date: 20180509
  Serious: Yes (Hospitalization)
  Sender: FDA-Public Use
  Company Number: RU-BRISTOL-MYERS SQUIBB COMPANY-BMS-2018-014593

PATIENT
  Age: 57 Year
  Sex: Female
  Weight: 70 kg

DRUGS (3)
  1. INSUMAN BASAL GT [Suspect]
     Active Substance: INSULIN HUMAN
     Indication: TYPE 2 DIABETES MELLITUS
     Dosage: 36 IU, UNK
     Route: 058
  2. GLUCOPHAGE [Suspect]
     Active Substance: METFORMIN HYDROCHLORIDE
     Indication: TYPE 2 DIABETES MELLITUS
     Dosage: 1000 MG, UNK
     Route: 048
  3. INSUMAN RAPID GT [Suspect]
     Active Substance: INSULIN HUMAN
     Indication: TYPE 2 DIABETES MELLITUS
     Dosage: 28 IU, UNK
     Route: 058

REACTIONS (2)
  - Hyperglycaemia [Recovering/Resolving]
  - Depression [Recovering/Resolving]
